FAERS Safety Report 8555399-1 (Version None)
Quarter: 2012Q3

REPORT INFORMATION
  Report Type: 
  Country: None (occurrence: None)
  Receive Date: 20120731
  Receipt Date: 20120328
  Transmission Date: 20120928
  Serious: Yes (Other)
  Sender: FDA-Public Use
  Company Number: US-ASTRAZENECA-2011SE39688

PATIENT
  Age: 26 Year
  Sex: Female

DRUGS (4)
  1. TRILEPTIL [Concomitant]
  2. SEROQUEL XR [Suspect]
     Indication: BIPOLAR DISORDER
     Route: 048
  3. ADDERALL 5 [Concomitant]
  4. SEROQUEL XR [Suspect]
     Route: 048
     Dates: start: 20110629

REACTIONS (3)
  - PAIN [None]
  - EPILEPSY [None]
  - OROPHARYNGEAL PAIN [None]
